FAERS Safety Report 11290258 (Version 3)
Quarter: 2015Q3

REPORT INFORMATION
  Report Type: Report from Study
  Country: HU (occurrence: HU)
  Receive Date: 20150721
  Receipt Date: 20150810
  Transmission Date: 20151125
  Serious: Yes (Death, Other)
  Sender: FDA-Public Use
  Company Number: HU-ABBVIE-15P-076-1429028-00

PATIENT
  Age: 78 Year
  Sex: Female
  Weight: 68 kg

DRUGS (10)
  1. RETAPHYLLINE [Concomitant]
     Indication: CHRONIC OBSTRUCTIVE PULMONARY DISEASE
     Route: 048
     Dates: end: 20150717
  2. COVEREX AS [Concomitant]
     Indication: HYPERTONIA
     Route: 048
     Dates: end: 20150717
  3. DUODOPA [Suspect]
     Active Substance: CARBIDOPA\LEVODOPA
     Indication: PARKINSON^S DISEASE
     Dosage: MORNING:8.5 ML, CONTINUOUS:2.2 ML/H, EXTRA:0.8 ML
     Route: 050
     Dates: start: 20150521
  4. NITRO DUR [Concomitant]
     Indication: CARDIOVASCULAR DISORDER
     Route: 062
     Dates: end: 20150717
  5. ATORVA [Concomitant]
     Indication: DYSLIPIDAEMIA
     Dates: end: 20150717
  6. AMILOZID [Concomitant]
     Indication: HYPERTONIA
     Route: 048
     Dates: end: 20150717
  7. ASPIRIN. [Concomitant]
     Active Substance: ASPIRIN
     Indication: CARDIOVASCULAR DISORDER
     Route: 048
     Dates: end: 20150717
  8. DUODOPA [Suspect]
     Active Substance: CARBIDOPA\LEVODOPA
     Dosage: MORNING DOSE: 9.0ML; CONTINUOUS DOSE: 2.6ML/H; EXTRA DOSE: 1.1 ML
     Route: 050
  9. TRIMETOZINE [Concomitant]
     Indication: CARDIOVASCULAR DISORDER
     Route: 048
     Dates: end: 20150717
  10. SPIRIVA [Concomitant]
     Active Substance: TIOTROPIUM BROMIDE MONOHYDRATE
     Indication: CHRONIC OBSTRUCTIVE PULMONARY DISEASE
     Route: 048
     Dates: end: 20150717

REACTIONS (3)
  - Depression [Unknown]
  - Ventricular arrhythmia [Fatal]
  - Left ventricular failure [Fatal]

NARRATIVE: CASE EVENT DATE: 20150717
